FAERS Safety Report 14671017 (Version 4)
Quarter: 2018Q3

REPORT INFORMATION
  Report Type: Spontaneous
  Country: US (occurrence: US)
  Receive Date: 20180322
  Receipt Date: 20180919
  Transmission Date: 20181010
  Serious: Yes (Hospitalization, Other)
  Sender: FDA-Public Use
  Company Number: US-VIFOR (INTERNATIONAL) INC.-VIT-2018-02697

PATIENT
  Age: 61 Year
  Sex: Male

DRUGS (15)
  1. VELTASSA [Suspect]
     Active Substance: PATIROMER
     Dates: start: 20161129
  2. DIALYVITE [Concomitant]
     Active Substance: ASCORBIC ACID\BIOTIN\CALCIUM PANTOTHENATE\COBALAMIN\FOLIC ACID\NIACINAMIDE\PYRIDOXINE HYDROCHLORIDE\RIBOFLAVIN\THIAMINE MONONITRATE
  3. PANTOPRAZOLE SODIUM. [Concomitant]
     Active Substance: PANTOPRAZOLE SODIUM
  4. ASPIRIN. [Concomitant]
     Active Substance: ASPIRIN
  5. VENTOLIN HFA [Concomitant]
     Active Substance: ALBUTEROL SULFATE
  6. DEXILANT [Concomitant]
     Active Substance: DEXLANSOPRAZOLE
  7. FOLIC ACID. [Concomitant]
     Active Substance: FOLIC ACID
  8. KEFLEX [Concomitant]
     Active Substance: CEPHALEXIN
  9. VELTASSA [Suspect]
     Active Substance: PATIROMER
     Indication: HYPERKALAEMIA
     Route: 048
  10. RENVELA [Concomitant]
     Active Substance: SEVELAMER CARBONATE
  11. NORCO [Concomitant]
     Active Substance: ACETAMINOPHEN\HYDROCODONE BITARTRATE
  12. GABAPENTIN. [Concomitant]
     Active Substance: GABAPENTIN
  13. SENSIPAR [Concomitant]
     Active Substance: CINACALCET HYDROCHLORIDE
  14. ZOLPIDEM TARTRATE. [Concomitant]
     Active Substance: ZOLPIDEM TARTRATE
  15. LOVAZA [Concomitant]
     Active Substance: OMEGA-3-ACID ETHYL ESTERS

REACTIONS (5)
  - Surgery [Unknown]
  - Cardiac murmur [Unknown]
  - Drug hypersensitivity [Unknown]
  - Inappropriate schedule of drug administration [Unknown]
  - Aortic valve replacement [Unknown]

NARRATIVE: CASE EVENT DATE: 20161126
